FAERS Safety Report 22637181 (Version 1)
Quarter: 2023Q2

REPORT INFORMATION
  Report Type: Spontaneous
  Country: US (occurrence: None)
  Receive Date: 20230622
  Receipt Date: 20230622
  Transmission Date: 20230722
  Serious: No
  Sender: FDA-Public Use
  Company Number: None

PATIENT
  Sex: Female

DRUGS (1)
  1. ARANESP [Suspect]
     Active Substance: DARBEPOETIN ALFA
     Indication: Myelodysplastic syndrome with multilineage dysplasia
     Dosage: 500MCG EVERY 21 DAYS SUBCUTANEOUS?
     Route: 058
     Dates: start: 20230519

REACTIONS (1)
  - Hospitalisation [None]
